FAERS Safety Report 4674002-4 (Version None)
Quarter: 2005Q2

REPORT INFORMATION
  Report Type: 
  Country: None (occurrence: None)
  Receive Date: 20050525
  Receipt Date: 20050512
  Transmission Date: 20051028
  Serious: Yes (Hospitalization)
  Sender: FDA-Public Use
  Company Number: SE-2005-008119

PATIENT
  Age: 69 Year
  Sex: Male

DRUGS (13)
  1. MAGNEVIST [Suspect]
     Indication: ANGIOGRAM
     Dosage: 45 ML, 1 DOSE, INTRAVENOUS
     Route: 042
     Dates: start: 20041217, end: 20041217
  2. GLUCAGON [Concomitant]
  3. LASIX [Concomitant]
  4. EMCONCOR (BISOPROLOL FUMARATE) [Concomitant]
  5. SERETIDE DISKUS (FLUTICASONE PROPIONATE, SALMETEROL XINAFOATE) [Concomitant]
  6. SIMVASTATIN [Concomitant]
  7. ZYLORIC [Concomitant]
  8. ATROVENT [Concomitant]
  9. SPIRONOLACTONE [Concomitant]
  10. HYRINEX [Concomitant]
  11. IMDUR [Concomitant]
  12. ASPIRIN [Concomitant]
  13. LINATIL (ENALAPRIL MALEATE) [Concomitant]

REACTIONS (6)
  - ANURIA [None]
  - BLOOD CREATININE INCREASED [None]
  - CONDITION AGGRAVATED [None]
  - DIALYSIS [None]
  - POST PROCEDURAL COMPLICATION [None]
  - RENAL FAILURE [None]
